FAERS Safety Report 9520397 (Version 2)
Quarter: 2013Q3

REPORT INFORMATION
  Report Type: Report from Study
  Country: IL (occurrence: IL)
  Receive Date: 20130912
  Receipt Date: 20130912
  Transmission Date: 20140515
  Serious: Yes (Hospitalization)
  Sender: FDA-Public Use
  Company Number: IL-EXELIXIS-XL18413002603

PATIENT
  Age: 63 Year
  Sex: Male
  Weight: 62 kg

DRUGS (5)
  1. XL184 [Suspect]
     Indication: THYROID CANCER
     Dosage: 175 MG, QD
     Route: 048
     Dates: start: 20100810
  2. XL184 [Suspect]
     Dosage: 75 MG, QD
     Route: 048
     Dates: end: 20130304
  3. XL184 [Suspect]
     Dosage: 75 MG, QD
     Route: 048
     Dates: start: 20130523
  4. PREGABALIN [Concomitant]
  5. LEVOTHYROXINE [Concomitant]

REACTIONS (1)
  - Oedema peripheral [Recovering/Resolving]
